FAERS Safety Report 5875305-8 (Version None)
Quarter: 2008Q3

REPORT INFORMATION
  Report Type: 
  Country: None (occurrence: None)
  Receive Date: 20080904
  Receipt Date: 20080827
  Transmission Date: 20090109
  Serious: Yes (Other)
  Sender: FDA-Public Use
  Company Number: 2008JP003926

PATIENT
  Age: 76 Year
  Sex: Male
  Weight: 79 kg

DRUGS (2)
  1. VESICARE [Suspect]
     Indication: HYPERTONIC BLADDER
     Dosage: 5 MG, UID/QD, ORAL
     Route: 048
     Dates: start: 20070413, end: 20070524
  2. URIEF PER ORAL NOS [Concomitant]

REACTIONS (3)
  - BLADDER CANCER [None]
  - BLOOD UREA INCREASED [None]
  - GAMMA-GLUTAMYLTRANSFERASE INCREASED [None]
